FAERS Safety Report 4750499-6 (Version None)
Quarter: 2005Q3

REPORT INFORMATION
  Report Type: 
  Country: None (occurrence: None)
  Receive Date: 20050823
  Receipt Date: 20050811
  Transmission Date: 20060218
  Serious: Yes (Other)
  Sender: FDA-Public Use
  Company Number: NL-JNJFOC-20050803053

PATIENT
  Age: 14 Year
  Sex: Male

DRUGS (7)
  1. PROPULSID [Suspect]
     Indication: DRUG USE FOR UNKNOWN INDICATION
     Route: 065
  2. FLUCONAZOLE [Interacting]
     Indication: DRUG USE FOR UNKNOWN INDICATION
     Route: 065
  3. SEVOFLURANE [Suspect]
     Indication: ANAESTHESIA
     Route: 055
  4. CEPHALOSPORINS [Concomitant]
     Route: 065
  5. VANCOMYCIN [Concomitant]
     Route: 065
  6. ZOFRAN [Concomitant]
     Route: 065
  7. LACTULOSE [Concomitant]
     Route: 065

REACTIONS (8)
  - ARRHYTHMIA [None]
  - BLOOD CREATININE DECREASED [None]
  - BLOOD UREA DECREASED [None]
  - CARDIOMYOPATHY [None]
  - DRUG INTERACTION [None]
  - ELECTROCARDIOGRAM QT PROLONGED [None]
  - LIVER FUNCTION TEST ABNORMAL [None]
  - VENTRICULAR TACHYCARDIA [None]
